FAERS Safety Report 5955435-2 (Version None)
Quarter: 2008Q4

REPORT INFORMATION
  Report Type: 
  Country: None (occurrence: None)
  Receive Date: 20081117
  Receipt Date: 20081103
  Transmission Date: 20090506
  Serious: Yes (Hospitalization, Disabling)
  Sender: FDA-Public Use
  Company Number: CA-ROCHE-523790

PATIENT
  Sex: Male
  Weight: 107 kg

DRUGS (15)
  1. PEG-INTERFERON ALFA 2A (RO 25-8310) [Suspect]
     Route: 058
     Dates: start: 20070203
  2. PEG-INTERFERON ALFA 2A (RO 25-8310) [Suspect]
     Route: 058
     Dates: start: 20070417
  3. PEG-INTERFERON ALFA 2A (RO 25-8310) [Suspect]
     Route: 058
     Dates: end: 20070601
  4. PEG-INTERFERON ALFA 2A (RO 25-8310) [Suspect]
     Dosage: PERMANENTLY DISCONTINUED ON 09 NOVEMBER 2008.
     Route: 058
     Dates: end: 20071015
  5. RIBAVIRIN [Suspect]
     Dosage: GIVEN AS SIX TABS TWICE DAILY.
     Route: 048
     Dates: start: 20070203, end: 20070218
  6. RIBAVIRIN [Suspect]
     Dosage: DOSE DECREASED TO TWO TABS TWICE DAILY.
     Route: 048
     Dates: start: 20070219
  7. RIBAVIRIN [Suspect]
     Dosage: GIVEN AS THREE TABLETS TWICE DAILY.
     Route: 048
     Dates: end: 20070601
  8. RIBAVIRIN [Suspect]
     Dosage: GIVEN AS THREE TABLETS TWICE DAILY. PERMANENTLY DISCONTINUED ON 09 NOVEMBER 2008.
     Route: 048
     Dates: end: 20071015
  9. ATACAND [Concomitant]
     Dates: start: 19970101
  10. HYDROCHLOROTHIAZIDE [Concomitant]
     Dates: start: 19970101
  11. GLYBURIDE [Concomitant]
     Dates: start: 19970101
  12. METFORMIN HCL [Concomitant]
     Dates: start: 19970101
  13. CLONAZEPAM [Concomitant]
     Dates: start: 20000101
  14. TERAZOSIN HCL [Concomitant]
     Dates: start: 19980101
  15. SPIRONOLACTONE [Concomitant]

REACTIONS (1)
  - HEPATIC ENCEPHALOPATHY [None]
